FAERS Safety Report 9372958 (Version 1)
Quarter: 2013Q2

REPORT INFORMATION
  Report Type: Spontaneous
  Country: KR (occurrence: None)
  Receive Date: 20130624
  Receipt Date: 20130624
  Transmission Date: 20140414
  Serious: Yes (Hospitalization)
  Sender: FDA-Public Use
  Company Number: IMP_06724_2013

PATIENT
  Age: 50 Year
  Sex: Female

DRUGS (4)
  1. ALPRAZOLAM (ALPRAZOLAM) [Suspect]
     Indication: ANXIETY DISORDER
  2. FLUOXETINE [Concomitant]
  3. DIAZEPAM [Concomitant]
  4. TOFISOPAM [Concomitant]

REACTIONS (1)
  - Deep vein thrombosis [None]
